FAERS Safety Report 9654482 (Version 1)
Quarter: 2013Q4

REPORT INFORMATION
  Report Type: Spontaneous
  Country: US (occurrence: US)
  Receive Date: 20131029
  Receipt Date: 20131029
  Transmission Date: 20140711
  Serious: No
  Sender: FDA-Public Use
  Company Number: US-BIOGENIDEC-2013BI084581

PATIENT
  Age: 50 Year
  Sex: Female

DRUGS (12)
  1. TECFIDERA [Suspect]
     Indication: MULTIPLE SCLEROSIS
     Route: 048
  2. AVINZA [Concomitant]
  3. CYCLOBENZAPRINE [Concomitant]
  4. CYMBALTA [Concomitant]
  5. FERROUS SULFATE [Concomitant]
  6. GLUCOPHAGE [Concomitant]
  7. LEVOTHYROXINE SODIUM [Concomitant]
  8. LIBRIUM [Concomitant]
  9. LUCENTIS [Concomitant]
  10. LYRICA [Concomitant]
  11. METOPROLOL TARTRATE [Concomitant]
  12. NEXIUM [Concomitant]

REACTIONS (1)
  - Arthralgia [Unknown]
